FAERS Safety Report 20920528 (Version 1)
Quarter: 2022Q2

REPORT INFORMATION
  Report Type: Spontaneous
  Country: PT (occurrence: PT)
  Receive Date: 20220606
  Receipt Date: 20220606
  Transmission Date: 20220721
  Serious: Yes (Other)
  Sender: FDA-Public Use
  Company Number: PT-002147023-NVSC2022PT114732

PATIENT
  Age: 73 Year
  Sex: Female

DRUGS (11)
  1. MIRTAZAPINE [Suspect]
     Active Substance: MIRTAZAPINE
     Indication: Product used for unknown indication
     Dosage: 15 MG (AT BEDTIME), FORMULATION REPORTED AS ORODISPERSIBLE TABLET
     Route: 065
  2. LISINOPRIL [Concomitant]
     Active Substance: LISINOPRIL
     Indication: Product used for unknown indication
     Dosage: UNK, (20/5 MG AT BREAKFAST IN COMBINATION WITH AMLODIPINE)
     Route: 065
  3. AMLODIPINE [Concomitant]
     Active Substance: AMLODIPINE BESYLATE
     Indication: Product used for unknown indication
     Dosage: UNK, (20/5 MG AT BREAKFAST)
     Route: 065
  4. SERTRALINE [Suspect]
     Active Substance: SERTRALINE HYDROCHLORIDE
     Indication: Product used for unknown indication
     Dosage: 50 MG (AT BREAKFAST)
     Route: 065
  5. FULVESTRANT [Suspect]
     Active Substance: FULVESTRANT
     Indication: Metastases to liver
     Dosage: UNK
     Route: 065
     Dates: start: 20200402
  6. FULVESTRANT [Suspect]
     Active Substance: FULVESTRANT
     Indication: Invasive ductal breast carcinoma
  7. LETROZOLE [Suspect]
     Active Substance: LETROZOLE
     Indication: Metastases to liver
     Dosage: 2.5 MG, QD
     Route: 065
     Dates: start: 201101, end: 201601
  8. LETROZOLE [Suspect]
     Active Substance: LETROZOLE
     Indication: Invasive ductal breast carcinoma
     Dosage: 2.5 MG, QD
     Route: 065
     Dates: start: 20190122, end: 202003
  9. RIBOCICLIB [Suspect]
     Active Substance: RIBOCICLIB
     Indication: Metastases to liver
     Dosage: 600 MG, QD
     Route: 065
     Dates: start: 20190122
  10. RIBOCICLIB [Suspect]
     Active Substance: RIBOCICLIB
     Indication: Invasive ductal breast carcinoma
     Dosage: 400 MG, QD
     Route: 065
     Dates: start: 202003
  11. RIBOCICLIB [Suspect]
     Active Substance: RIBOCICLIB
     Dosage: 600 MG, QD
     Route: 065

REACTIONS (6)
  - Diarrhoea [Unknown]
  - Abdominal pain [Unknown]
  - Malignant neoplasm progression [Unknown]
  - Neutropenia [Unknown]
  - Metastases to liver [Unknown]
  - Invasive ductal breast carcinoma [Unknown]

NARRATIVE: CASE EVENT DATE: 20180501
